FAERS Safety Report 15268814 (Version 12)
Quarter: 2019Q2

REPORT INFORMATION
  Report Type: Spontaneous
  Country: DE (occurrence: DE)
  Receive Date: 20180813
  Receipt Date: 20190614
  Transmission Date: 20190711
  Serious: Yes (Death, Life-Threatening, Hospitalization, Other)
  Sender: FDA-Public Use
  Company Number: DE-ORION CORPORATION ORION PHARMA-ENTC2009-0251

PATIENT
  Age: 68 Year
  Sex: Female
  Weight: 53 kg

DRUGS (43)
  1. STALEVO [Suspect]
     Active Substance: CARBIDOPA\ENTACAPONE\LEVODOPA
     Route: 048
     Dates: start: 20090111
  2. KALIUM [Concomitant]
     Active Substance: POTASSIUM CHLORIDE
     Route: 065
  3. ISICOM [Concomitant]
     Active Substance: CARBIDOPA\LEVODOPA
     Route: 065
  4. STALEVO [Suspect]
     Active Substance: CARBIDOPA\ENTACAPONE\LEVODOPA
     Route: 048
  5. EXELON [Suspect]
     Active Substance: RIVASTIGMINE TARTRATE
     Dosage: 3 MG BID
     Route: 065
  6. DISTRANEURIN [Suspect]
     Active Substance: CLOMETHIAZOLE
     Dosage: 1 OT, QD
     Route: 065
  7. CARBIDOPA. [Suspect]
     Active Substance: CARBIDOPA
     Indication: PRODUCT USED FOR UNKNOWN INDICATION
     Route: 048
  8. METOCLOPRAMID [Concomitant]
     Active Substance: METOCLOPRAMIDE
     Route: 042
  9. ERGENYL [Concomitant]
     Active Substance: VALPROIC ACID
     Route: 065
  10. DOMPERIDONE (NGX) [Suspect]
     Active Substance: DOMPERIDONE
     Route: 048
  11. VALPROIC ACID. [Suspect]
     Active Substance: VALPROIC ACID
     Indication: PRODUCT USED FOR UNKNOWN INDICATION
     Route: 048
     Dates: end: 200901
  12. NOVAMINSULFON [Concomitant]
     Active Substance: METAMIZOLE
     Route: 065
  13. NOVAMINSULFON [Concomitant]
     Active Substance: METAMIZOLE
     Route: 065
  14. CARBIDOPA/LEVODOPA [Suspect]
     Active Substance: CARBIDOPA\LEVODOPA
     Indication: PREMEDICATION
     Route: 048
  15. CARBIDOPA/LEVODOPA [Suspect]
     Active Substance: CARBIDOPA\LEVODOPA
     Route: 048
  16. RIVASTIGMINE. [Suspect]
     Active Substance: RIVASTIGMINE
     Route: 065
  17. STALEVO [Suspect]
     Active Substance: CARBIDOPA\ENTACAPONE\LEVODOPA
     Indication: PRODUCT USED FOR UNKNOWN INDICATION
     Route: 048
  18. EXELON [Suspect]
     Active Substance: RIVASTIGMINE TARTRATE
     Indication: PARKINSON^S DISEASE
     Dosage: 3 MG BID
     Route: 048
  19. RIVASTIGMINE. [Suspect]
     Active Substance: RIVASTIGMINE
     Indication: PARKINSON^S DISEASE
     Route: 048
  20. LEVODOPA [Suspect]
     Active Substance: LEVODOPA
     Indication: PREMEDICATION
     Route: 048
  21. LEVODOPA [Suspect]
     Active Substance: LEVODOPA
     Route: 065
  22. NEOSTIGMINE. [Concomitant]
     Active Substance: NEOSTIGMINE METHYLSULFATE
     Route: 065
  23. LACTULOSE. [Concomitant]
     Active Substance: LACTULOSE
     Route: 065
  24. CLOZAPINE. [Suspect]
     Active Substance: CLOZAPINE
     Route: 048
     Dates: start: 20090111
  25. OMEPRAZOLE (NGX) [Suspect]
     Active Substance: OMEPRAZOLE
     Indication: PREMEDICATION
     Route: 065
  26. ERGENYL [Concomitant]
     Active Substance: VALPROIC ACID
     Route: 065
     Dates: start: 20090111
  27. STALEVO [Suspect]
     Active Substance: CARBIDOPA\ENTACAPONE\LEVODOPA
     Route: 065
  28. STALEVO [Suspect]
     Active Substance: CARBIDOPA\ENTACAPONE\LEVODOPA
     Dosage: 6X100MG
     Route: 048
     Dates: end: 200909
  29. CLOZAPINE. [Suspect]
     Active Substance: CLOZAPINE
     Indication: PRODUCT USED FOR UNKNOWN INDICATION
     Dosage: 0.5 DF, Q3W (25 MG (0.5 TABLET AT 7+9+12+14+19 O^ CLOCK)
     Route: 048
  30. CLOZAPINE. [Suspect]
     Active Substance: CLOZAPINE
     Route: 048
  31. PIPAMPERONE [Suspect]
     Active Substance: PIPAMPERONE
     Indication: PRODUCT USED FOR UNKNOWN INDICATION
     Dosage: 40 MG, QD
     Route: 048
  32. VALPROIC ACID. [Suspect]
     Active Substance: VALPROIC ACID
     Route: 048
  33. VALPROIC ACID. [Suspect]
     Active Substance: VALPROIC ACID
     Route: 048
  34. DISTRANEURIN [Suspect]
     Active Substance: CLOMETHIAZOLE
     Indication: PREMEDICATION
     Dosage: AS NECESSARY
     Route: 048
     Dates: start: 2009
  35. RIVASTIGMINE. [Suspect]
     Active Substance: RIVASTIGMINE
     Dosage: 1 MG, QD 3-1.5-1.5 MG
     Route: 048
  36. LEVODOPA [Suspect]
     Active Substance: LEVODOPA
     Route: 048
  37. CLOZAPINE. [Suspect]
     Active Substance: CLOZAPINE
     Route: 048
  38. DOMPERIDONE (NGX) [Suspect]
     Active Substance: DOMPERIDONE
     Indication: PRODUCT USED FOR UNKNOWN INDICATION
     Route: 048
  39. CARBIDOPA. [Suspect]
     Active Substance: CARBIDOPA
     Route: 065
  40. CARBIDOPA. [Suspect]
     Active Substance: CARBIDOPA
     Route: 065
  41. TRAMAL [Concomitant]
     Active Substance: TRAMADOL
     Route: 042
  42. MOVICOL [Concomitant]
     Active Substance: POLYETHYLENE GLYCOL 3350\POTASSIUM CHLORIDE\SODIUM BICARBONATE\SODIUM CHLORIDE
     Route: 065
  43. NACOM [Concomitant]
     Active Substance: CARBIDOPA\LEVODOPA
     Route: 065

REACTIONS (13)
  - Faecaloma [Fatal]
  - Subileus [Fatal]
  - Ileus [Fatal]
  - Nausea [Fatal]
  - Urinary retention [Fatal]
  - Abdominal pain [Fatal]
  - White blood cell count increased [Fatal]
  - Gastrointestinal sounds abnormal [Fatal]
  - Dementia [Fatal]
  - Vascular encephalopathy [Fatal]
  - Abdominal tenderness [Fatal]
  - Pancreatitis [Fatal]
  - Abdominal distension [Fatal]

NARRATIVE: CASE EVENT DATE: 2009
